FAERS Safety Report 9958681 (Version 1)
Quarter: 2014Q1

REPORT INFORMATION
  Report Type: Spontaneous
  Country: US (occurrence: None)
  Receive Date: 20140228
  Receipt Date: 20140228
  Transmission Date: 20141002
  Serious: Yes (Death)
  Sender: FDA-Public Use
  Company Number: None

PATIENT
  Age: 47 Year
  Sex: Female
  Weight: 90.72 kg

DRUGS (6)
  1. ZYVOX [Suspect]
     Indication: SKIN INFECTION
     Route: 048
     Dates: start: 20140224
  2. LYRICA [Concomitant]
  3. FUROSEMIDE [Concomitant]
  4. TIZANIDINE [Concomitant]
  5. CARVEDILOL [Concomitant]
  6. CLONAZEPAM [Concomitant]

REACTIONS (1)
  - Anaphylactic shock [None]
